FAERS Safety Report 6210788-5 (Version None)
Quarter: 2009Q2

REPORT INFORMATION
  Report Type: 
  Country: None (occurrence: None)
  Receive Date: 20090601
  Receipt Date: 20090518
  Transmission Date: 20091009
  Serious: Yes (Hospitalization)
  Sender: FDA-Public Use
  Company Number: US-AVENTIS-200914313US

PATIENT
  Sex: Female

DRUGS (5)
  1. LANTUS [Suspect]
     Indication: TYPE 2 DIABETES MELLITUS
     Route: 058
  2. CARDIOVASCULAR SYSTEM DRUGS [Concomitant]
     Dosage: DOSE: UNK
  3. VITAMINS [Concomitant]
     Dosage: DOSE: UNK
  4. LASIX [Concomitant]
     Dosage: DOSE: UNK
  5. ANTITHROMBOTIC AGENTS [Concomitant]
     Dosage: DOSE: UNK

REACTIONS (3)
  - DIZZINESS [None]
  - FALL [None]
  - PARALYSIS [None]
